FAERS Safety Report 16980146 (Version 2)
Quarter: 2020Q1

REPORT INFORMATION
  Report Type: Spontaneous
  Country: FR (occurrence: FR)
  Receive Date: 20191031
  Receipt Date: 20200130
  Transmission Date: 20200409
  Serious: Yes (Other)
  Sender: FDA-Public Use
  Company Number: FR-ASTRAZENECA-2019SF50834

PATIENT
  Age: 71 Year
  Sex: Male
  Weight: 71 kg

DRUGS (4)
  1. DURVALUMAB. [Suspect]
     Active Substance: DURVALUMAB
     Indication: LUNG ADENOCARCINOMA
     Dosage: 1350.0MG EVERY CYCLE
     Route: 042
     Dates: start: 20190626, end: 20190820
  2. DURVALUMAB. [Suspect]
     Active Substance: DURVALUMAB
     Indication: LUNG ADENOCARCINOMA
     Dosage: EVERY CYCLE
     Route: 042
     Dates: start: 20191015
  3. DURVALUMAB. [Suspect]
     Active Substance: DURVALUMAB
     Indication: LUNG ADENOCARCINOMA
     Dosage: EVERY CYCLE
     Route: 042
     Dates: start: 20191015
  4. DURVALUMAB. [Suspect]
     Active Substance: DURVALUMAB
     Indication: LUNG ADENOCARCINOMA
     Dosage: 1350.0MG EVERY CYCLE
     Route: 042
     Dates: start: 20190626, end: 20190820

REACTIONS (1)
  - Lipase increased [Recovered/Resolved]

NARRATIVE: CASE EVENT DATE: 20190820
